FAERS Safety Report 8011263-8 (Version None)
Quarter: 2011Q4

REPORT INFORMATION
  Report Type: 
  Country: None (occurrence: None)
  Receive Date: 20111227
  Receipt Date: 20111227
  Transmission Date: 20120403
  Serious: No
  Sender: FDA-Public Use
  Company Number: None

PATIENT
  Age: 33 Year
  Sex: Male
  Weight: 111.58 kg

DRUGS (2)
  1. LASTACAFT [Suspect]
     Indication: ASTHENOPIA
     Route: 047
  2. LASTACAFT [Suspect]
     Indication: DRY EYE
     Route: 047

REACTIONS (3)
  - INSTILLATION SITE ERYTHEMA [None]
  - EYE DISCHARGE [None]
  - INSTILLATION SITE PAIN [None]
